FAERS Safety Report 4502690-1 (Version None)
Quarter: 2004Q4

REPORT INFORMATION
  Report Type: 
  Country: None (occurrence: None)
  Receive Date: 20041109
  Receipt Date: 20041029
  Transmission Date: 20050328
  Serious: Yes (Other)
  Sender: FDA-Public Use
  Company Number: GBWYE986519AUG04

PATIENT

DRUGS (1)
  1. EFFEXOR [Suspect]
     Indication: DEPRESSION
     Dosage: 75MG ORAL
     Route: 048

REACTIONS (2)
  - ADENOMATOUS POLYPOSIS COLI [None]
  - DRUG EXPOSURE DURING PREGNANCY [None]
